FAERS Safety Report 12061305 (Version 2)
Quarter: 2016Q1

REPORT INFORMATION
  Report Type: Report from Study
  Country: TW (occurrence: TW)
  Receive Date: 20160210
  Receipt Date: 20160322
  Transmission Date: 20160526
  Serious: Yes (Hospitalization)
  Sender: FDA-Public Use
  Company Number: TW-ABBVIE-16K-153-1553717-00

PATIENT
  Age: 40 Year
  Sex: Male
  Weight: 87 kg

DRUGS (5)
  1. HUMIRA [Suspect]
     Active Substance: ADALIMUMAB
     Indication: PSORIASIS
     Route: 058
     Dates: start: 20140107
  2. LINAGLIPTIN [Concomitant]
     Active Substance: LINAGLIPTIN
     Indication: DIABETES MELLITUS
     Route: 048
     Dates: start: 201409
  3. IMDUR [Concomitant]
     Active Substance: ISOSORBIDE MONONITRATE
     Indication: HYPERTENSION
     Route: 048
     Dates: start: 201409
  4. BUMETANIDE. [Concomitant]
     Active Substance: BUMETANIDE
     Indication: DIABETES MELLITUS
     Route: 048
     Dates: start: 201409
  5. CARVEDILOL HEXAL [Concomitant]
     Active Substance: CARVEDILOL
     Indication: HYPERTENSION
     Route: 048
     Dates: start: 201409

REACTIONS (8)
  - Diabetes mellitus [Recovering/Resolving]
  - Asthenia [Unknown]
  - Angina pectoris [Recovering/Resolving]
  - Coronary artery disease [Recovering/Resolving]
  - Nausea [Unknown]
  - Cardiac failure [Recovering/Resolving]
  - Hypertension [Recovering/Resolving]
  - Dyslipidaemia [Unknown]

NARRATIVE: CASE EVENT DATE: 201409
